FAERS Safety Report 15325991 (Version 3)
Quarter: 2019Q1

REPORT INFORMATION
  Report Type: Report from Study
  Country: CA (occurrence: CA)
  Receive Date: 20180828
  Receipt Date: 20190128
  Transmission Date: 20190417
  Serious: Yes (Other)
  Sender: FDA-Public Use
  Company Number: CA-OTSUKA-2018_003605

PATIENT
  Age: 55 Year
  Sex: Male

DRUGS (11)
  1. JINARC [Suspect]
     Active Substance: TOLVAPTAN
     Dosage: 15 MG, QD (IN EVENING)
     Route: 048
     Dates: start: 20180127, end: 20180302
  2. BISOPROLOL [Suspect]
     Active Substance: BISOPROLOL
     Indication: CARDIAC DISORDER
     Dosage: 2.5 MG, UNK
     Route: 065
  3. RABEPRAZOLE [Concomitant]
     Active Substance: RABEPRAZOLE
     Indication: HYPERCHLORHYDRIA
     Dosage: 20 MG, QAM (EVERY MORNING)
     Route: 065
  4. LEVOTHYROXINE. [Concomitant]
     Active Substance: LEVOTHYROXINE
     Indication: THYROID DISORDER
     Dosage: 0.15 MG, QD (QHS)
     Route: 065
  5. IRBESARTAN. [Concomitant]
     Active Substance: IRBESARTAN
     Indication: HYPERTENSION
     Dosage: 300 MG, QD (EVERY MORNING)
     Route: 065
  6. SYNTHROID [Concomitant]
     Active Substance: LEVOTHYROXINE SODIUM
     Indication: THYROID DISORDER
     Dosage: UNK
     Route: 065
  7. JINARC [Suspect]
     Active Substance: TOLVAPTAN
     Indication: CONGENITAL CYSTIC KIDNEY DISEASE
     Dosage: 45 MG, QD (IN MORNING)
     Route: 048
     Dates: start: 20180127, end: 20180302
  8. BISOPROLOL [Suspect]
     Active Substance: BISOPROLOL
     Dosage: 5 MG, QD
     Route: 065
  9. AMLODIPINE [Concomitant]
     Active Substance: AMLODIPINE BESYLATE
     Indication: PRODUCT USED FOR UNKNOWN INDICATION
     Dosage: 10 MG, QD (QHS)
     Route: 065
  10. ROSUVASTATIN. [Concomitant]
     Active Substance: ROSUVASTATIN
     Indication: BLOOD CHOLESTEROL ABNORMAL
     Dosage: 5 MG, QD (QHS)
     Route: 065
  11. JINARC [Suspect]
     Active Substance: TOLVAPTAN
     Dosage: UNK
     Route: 065
     Dates: start: 20180612

REACTIONS (17)
  - Aspartate aminotransferase increased [Recovered/Resolved]
  - Alanine aminotransferase increased [Recovered/Resolved]
  - Erythema [Unknown]
  - Hypertension [Not Recovered/Not Resolved]
  - Liver function test abnormal [Recovered/Resolved]
  - Impaired driving ability [Recovered/Resolved]
  - Pain in extremity [Unknown]
  - Pruritus [Recovered/Resolved]
  - Arthralgia [Unknown]
  - Blood sodium increased [Unknown]
  - Thirst [Unknown]
  - Influenza [Recovered/Resolved]
  - Nocturia [Not Recovered/Not Resolved]
  - Dry mouth [Unknown]
  - Blood blister [Unknown]
  - Liver function test increased [Unknown]
  - Gait disturbance [Unknown]

NARRATIVE: CASE EVENT DATE: 20180127
